FAERS Safety Report 17865779 (Version 3)
Quarter: 2020Q2

REPORT INFORMATION
  Report Type: Report from Study
  Country: US (occurrence: US)
  Receive Date: 20200605
  Receipt Date: 20200626
  Transmission Date: 20200714
  Serious: Yes (Death, Life-Threatening)
  Sender: FDA-Public Use
  Company Number: US-SA-2020SA115324

PATIENT

DRUGS (18)
  1. SARILUMAB [Suspect]
     Active Substance: SARILUMAB
     Dosage: 1X, 200 MG IV OR 400 MG IV AT SINGLE OR MULTIPLE DOSES
     Route: 042
     Dates: start: 20200424, end: 20200424
  2. ACETAMINOPHEN. [Concomitant]
     Active Substance: ACETAMINOPHEN
     Indication: HEADACHE
     Dosage: 975 MG, 1X (OTO)
     Route: 048
     Dates: start: 20200418, end: 20200418
  3. ACETAMINOPHEN. [Concomitant]
     Active Substance: ACETAMINOPHEN
     Dosage: 1000 MG, 1X (OTO)
     Route: 042
     Dates: start: 20200423, end: 20200423
  4. HYDROXYCHLOROQUINE [Concomitant]
     Active Substance: HYDROXYCHLOROQUINE
     Indication: COVID-19
     Dosage: 400 MG, BID
     Route: 048
     Dates: start: 20200419, end: 20200419
  5. CONVALESCENT PLASMA [Concomitant]
     Active Substance: HUMAN PLASMA
     Indication: COVID-19 PNEUMONIA
     Dosage: 1 IU, 1X (OTO)
     Dates: start: 20200423, end: 20200423
  6. ACETAMINOPHEN. [Concomitant]
     Active Substance: ACETAMINOPHEN
     Indication: PYREXIA
     Dosage: 650 MG, Q6H
     Dates: start: 20200421, end: 20200425
  7. AZITHROMYCIN ANHYDROUS. [Concomitant]
     Active Substance: AZITHROMYCIN ANHYDROUS
     Dosage: 500 MG, 1X (OTO)
     Route: 042
     Dates: start: 20200419, end: 20200419
  8. ACETAMINOPHEN. [Concomitant]
     Active Substance: ACETAMINOPHEN
     Indication: PYREXIA
     Dosage: 650 MG, PRN
     Route: 048
     Dates: start: 20200419, end: 20200421
  9. CEFEPIME [Concomitant]
     Active Substance: CEFEPIME HYDROCHLORIDE
     Indication: SEPSIS
     Dosage: 1 G, Q12H
     Route: 042
     Dates: start: 20200423, end: 20200426
  10. PIPERACILLIN AND TAZOBACTAM [Concomitant]
     Active Substance: PIPERACILLIN SODIUM\TAZOBACTAM SODIUM
     Indication: SEPSIS
     Dosage: 4.5 G, Q6H
     Route: 042
     Dates: start: 20200421, end: 20200421
  11. CEFTRIAXONE. [Concomitant]
     Active Substance: CEFTRIAXONE
     Dosage: 1 G, QD
     Route: 042
     Dates: start: 20200419, end: 20200419
  12. SARILUMAB [Suspect]
     Active Substance: SARILUMAB
     Indication: COVID-19
     Dosage: 1X, 200 MG IV OR 400 MG IV AT SINGLE OR MULTIPLE DOSES
     Route: 042
     Dates: start: 20200423, end: 20200423
  13. AZITHROMYCIN ANHYDROUS. [Concomitant]
     Active Substance: AZITHROMYCIN ANHYDROUS
     Dosage: 500 MG, QD
     Route: 042
     Dates: start: 20200421, end: 20200422
  14. VANCOMYCIN [Concomitant]
     Active Substance: VANCOMYCIN
     Indication: SEPSIS
     Dosage: 1 G, 1X (OTO)
     Route: 042
     Dates: start: 20200423, end: 20200423
  15. AZITHROMYCIN ANHYDROUS. [Concomitant]
     Active Substance: AZITHROMYCIN ANHYDROUS
     Indication: PNEUMONIA
     Dosage: 500 MG, 1X (OTO)
     Route: 042
     Dates: start: 20200418, end: 20200418
  16. CEFTRIAXONE. [Concomitant]
     Active Substance: CEFTRIAXONE
     Indication: SEPSIS
     Dosage: 1 G, 1X (OTO)
     Route: 042
     Dates: start: 20200418, end: 20200418
  17. HYDROXYCHLOROQUINE [Concomitant]
     Active Substance: HYDROXYCHLOROQUINE
     Dosage: 200 MG, BID
     Route: 048
     Dates: start: 20200420, end: 20200422
  18. VANCOMYCIN [Concomitant]
     Active Substance: VANCOMYCIN
     Dosage: 1G, 1X (OTO)
     Route: 042
     Dates: start: 20200424, end: 20200424

REACTIONS (2)
  - Cardiac arrest [Fatal]
  - Pulseless electrical activity [Recovered/Resolved]

NARRATIVE: CASE EVENT DATE: 20200425
